FAERS Safety Report 15280898 (Version 5)
Quarter: 2018Q4

REPORT INFORMATION
  Report Type: Spontaneous
  Country: DK (occurrence: DK)
  Receive Date: 20180815
  Receipt Date: 20181030
  Transmission Date: 20190204
  Serious: Yes (Life-Threatening, Hospitalization, Disabling)
  Sender: FDA-Public Use
  Company Number: DK-CELGENEUS-DNK-20180802470

PATIENT
  Age: 74 Year
  Sex: Male

DRUGS (30)
  1. VERAPAMIL [Concomitant]
     Active Substance: VERAPAMIL HYDROCHLORIDE
     Indication: HEART RATE IRREGULAR
     Dosage: 120 MILLIGRAM
     Route: 048
     Dates: start: 20170119, end: 20180724
  2. APIXABAN [Concomitant]
     Active Substance: APIXABAN
     Indication: ATRIAL FIBRILLATION
     Dosage: 2.5 MILLIGRAM
     Route: 048
  3. POTASSIUM CHLORIDE. [Concomitant]
     Active Substance: POTASSIUM CHLORIDE
     Indication: MINERAL SUPPLEMENTATION
     Dosage: 1500 MILLIGRAM
     Route: 048
     Dates: start: 20161205, end: 20180816
  4. ACICLOVIR SODIUM [Concomitant]
     Active Substance: ACYCLOVIR SODIUM
     Dosage: 800 MILLIGRAM
     Route: 048
     Dates: start: 20180524
  5. QUININE [Concomitant]
     Active Substance: QUININE
     Indication: MUSCLE SPASMS
     Dosage: 100 MILLIGRAM
     Route: 065
  6. DIGOXIN. [Concomitant]
     Active Substance: DIGOXIN
     Indication: ATRIAL FIBRILLATION
     Dosage: 187.5 MICROGRAM
     Route: 065
  7. SENDOXAN [Concomitant]
     Active Substance: CYCLOPHOSPHAMIDE
     Indication: PLASMA CELL MYELOMA
     Dosage: 50 MILLIGRAM
     Route: 065
     Dates: start: 20180323, end: 20180726
  8. FUROSEMIDE. [Concomitant]
     Active Substance: FUROSEMIDE
     Dosage: 40 MILLIGRAM
     Route: 065
  9. PARACETAMOL [Concomitant]
     Active Substance: ACETAMINOPHEN
     Indication: PAIN
     Dosage: 1 TABLETS AS NEEDED, MAXIMUM FOUR TIMES A DAY
     Route: 048
     Dates: start: 20131202
  10. FERROUS SULFATE. [Concomitant]
     Active Substance: FERROUS SULFATE
     Indication: MINERAL SUPPLEMENTATION
     Dosage: 200 MILLIGRAM
     Route: 048
     Dates: start: 20160212
  11. AMIODARONE [Concomitant]
     Active Substance: AMIODARONE
     Indication: HEART RATE IRREGULAR
     Dosage: 100 MILLIGRAM
     Route: 048
     Dates: start: 20160120, end: 20180724
  12. ACICLOVIR SODIUM [Concomitant]
     Active Substance: ACYCLOVIR SODIUM
     Indication: HERPES ZOSTER
     Dosage: 2000 MILLIGRAM
     Route: 048
     Dates: start: 20180524
  13. KALIUMCHLORIDE [Concomitant]
     Indication: MINERAL SUPPLEMENTATION
     Dosage: 750 MILLIGRAM
     Route: 065
  14. REVLIMID [Suspect]
     Active Substance: LENALIDOMIDE
     Route: 048
     Dates: start: 201511, end: 201703
  15. DEXAMETHASONE. [Concomitant]
     Active Substance: DEXAMETHASONE
     Indication: PLASMA CELL MYELOMA
     Route: 065
     Dates: start: 20151012, end: 20161205
  16. ELOCON [Concomitant]
     Active Substance: MOMETASONE FUROATE
     Dosage: .2857 DOSAGE FORMS
     Route: 003
  17. KETOGAN [DIMETHYL-3,3-DIPHENYL-1-METHYLALLYLAMINE HCL;KETOBEMIDONE HYDROCHLORIDE] [Concomitant]
     Active Substance: DIMETHYLAMINODIPHENYLBUTENE HYDROCHLORIDE\KETOBEMIDONE HYDROCHLORIDE
     Indication: PAIN
     Dosage: 15 AND 25MG
     Route: 048
     Dates: start: 20160928
  18. DIMETHYL AMINODIPHENYLBUTEN [Concomitant]
     Indication: PAIN
     Dosage: 5/25 MG
     Route: 065
  19. REVLIMID [Suspect]
     Active Substance: LENALIDOMIDE
     Indication: PLASMA CELL MYELOMA
     Route: 048
     Dates: start: 20160908, end: 20170320
  20. REVLIMID [Suspect]
     Active Substance: LENALIDOMIDE
     Route: 048
     Dates: start: 201803, end: 201806
  21. FUROSEMIDE. [Concomitant]
     Active Substance: FUROSEMIDE
     Indication: DIURETIC THERAPY
     Dosage: 40 MILLIGRAM
     Route: 048
     Dates: start: 20170118, end: 20180816
  22. APIXABAN [Concomitant]
     Active Substance: APIXABAN
     Indication: THROMBOSIS PROPHYLAXIS
     Dosage: 2.5 MILLIGRAM
     Route: 048
     Dates: start: 20161118
  23. COBALAMIN [Concomitant]
     Active Substance: COBALAMIN
     Indication: VITAMIN B12 DECREASED
     Dosage: 1 MILLIGRAM
     Route: 065
     Dates: start: 201805
  24. CYCLOPHOSPHAMIDE. [Concomitant]
     Active Substance: CYCLOPHOSPHAMIDE
     Indication: PLASMA CELL MYELOMA
     Dosage: 50 MILLIGRAM
     Route: 065
     Dates: start: 201803
  25. REVLIMID [Suspect]
     Active Substance: LENALIDOMIDE
     Dosage: 25 MILLIGRAM
     Route: 048
     Dates: start: 20180323, end: 20180719
  26. REVLIMID [Suspect]
     Active Substance: LENALIDOMIDE
     Dosage: 15 MILLIGRAM
     Route: 048
     Dates: start: 201803
  27. ELOCON [Concomitant]
     Active Substance: MOMETASONE FUROATE
     Indication: PRURITUS
     Dosage: 1 DOSAGE FORMS
     Route: 003
  28. CYANOCOBALAMIN. [Concomitant]
     Active Substance: CYANOCOBALAMIN
     Indication: VITAMIN SUPPLEMENTATION
     Dosage: 1 MILLIGRAM
     Route: 048
     Dates: start: 20180524, end: 20180724
  29. PANTOPRAZOLE [Concomitant]
     Active Substance: PANTOPRAZOLE
     Indication: GASTROOESOPHAGEAL REFLUX DISEASE
     Route: 048
     Dates: start: 20150709
  30. DEXAMETHASONE. [Concomitant]
     Active Substance: DEXAMETHASONE
     Route: 065
     Dates: start: 201803

REACTIONS (8)
  - Atrial flutter [Unknown]
  - Hypokalaemia [Unknown]
  - Short-bowel syndrome [Unknown]
  - Intestinal ischaemia [Recovered/Resolved with Sequelae]
  - Fascial rupture [Unknown]
  - Electrocardiogram QT prolonged [Unknown]
  - General physical health deterioration [Recovered/Resolved]
  - Secretion discharge [Unknown]

NARRATIVE: CASE EVENT DATE: 201806
